FAERS Safety Report 8507284-9 (Version None)
Quarter: 2012Q3

REPORT INFORMATION
  Report Type: 
  Country: None (occurrence: None)
  Receive Date: 20120712
  Receipt Date: 20120710
  Transmission Date: 20120928
  Serious: Yes (Hospitalization, Other)
  Sender: FDA-Public Use
  Company Number: BR-ROCHE-1086540

PATIENT
  Sex: Female
  Weight: 64 kg

DRUGS (6)
  1. HYDROCHLOROTHIAZIDE [Concomitant]
  2. ACTEMRA [Suspect]
     Dates: start: 20120301
  3. ACTEMRA [Suspect]
     Indication: RHEUMATOID ARTHRITIS
     Route: 042
     Dates: start: 20120101
  4. LOSARTAN POTASSIUM [Concomitant]
  5. ACTEMRA [Suspect]
     Dates: start: 20120201
  6. HYGROTON [Concomitant]

REACTIONS (5)
  - HEADACHE [None]
  - PARAESTHESIA [None]
  - DIABETES MELLITUS [None]
  - BLOOD CHOLESTEROL INCREASED [None]
  - ABDOMINAL HERNIA [None]
